FAERS Safety Report 14475806 (Version 2)
Quarter: 2018Q3

REPORT INFORMATION
  Report Type: Not Available
  Country: US (occurrence: US)
  Receive Date: 20180201
  Receipt Date: 20180719
  Transmission Date: 20181010
  Serious: Yes (Other)
  Sender: FDA-Public Use
  Company Number: US-NEUROCRINE BIOSCIENCES INC.-2018NBI00292

PATIENT
  Sex: Female

DRUGS (23)
  1. INGREZZA [Suspect]
     Active Substance: VALBENAZINE
     Indication: PRODUCT USED FOR UNKNOWN INDICATION
     Route: 048
     Dates: start: 20171214, end: 20171220
  2. ALLOPURINOL. [Concomitant]
     Active Substance: ALLOPURINOL
  3. DULOXETINE. [Concomitant]
     Active Substance: DULOXETINE
  4. POTASSIUM [Concomitant]
     Active Substance: POTASSIUM
  5. TETRACYCLINE [Concomitant]
     Active Substance: TETRACYCLINE
  6. CHLORPROMAZINE. [Concomitant]
     Active Substance: CHLORPROMAZINE
  7. KEPPRA [Concomitant]
     Active Substance: LEVETIRACETAM
  8. CALCIUM [Concomitant]
     Active Substance: CALCIUM
  9. NEXIUM [Concomitant]
     Active Substance: ESOMEPRAZOLE MAGNESIUM
  10. NORCO [Concomitant]
     Active Substance: ACETAMINOPHEN\HYDROCODONE BITARTRATE
  11. VITAMIN D [Concomitant]
     Active Substance: CHOLECALCIFEROL
  12. XANAX [Concomitant]
     Active Substance: ALPRAZOLAM
  13. FENOFIBRATE. [Concomitant]
     Active Substance: FENOFIBRATE
  14. ZYRTEC [Concomitant]
     Active Substance: CETIRIZINE HYDROCHLORIDE
  15. INGREZZA [Suspect]
     Active Substance: VALBENAZINE
     Route: 048
     Dates: start: 20171221, end: 20180618
  16. VALACYCLOVIR [Concomitant]
     Active Substance: VALACYCLOVIR HYDROCHLORIDE
  17. NORVASC [Concomitant]
     Active Substance: AMLODIPINE BESYLATE
  18. PRAVACHOL [Concomitant]
     Active Substance: PRAVASTATIN SODIUM
  19. SINGULAIR [Concomitant]
     Active Substance: MONTELUKAST SODIUM
  20. TIZANIDINE. [Concomitant]
     Active Substance: TIZANIDINE
  21. CARVEDILOL. [Concomitant]
     Active Substance: CARVEDILOL
  22. DICLOFENAC [Concomitant]
     Active Substance: DICLOFENAC
  23. NEURONTIN [Concomitant]
     Active Substance: GABAPENTIN

REACTIONS (4)
  - Mania [Unknown]
  - Loss of consciousness [Unknown]
  - Blood pressure decreased [Unknown]
  - Restless legs syndrome [Unknown]
